FAERS Safety Report 13221566 (Version 1)
Quarter: 2017Q1

REPORT INFORMATION
  Report Type: Other
  Country: US (occurrence: US)
  Receive Date: 20170211
  Receipt Date: 20170211
  Transmission Date: 20170428
  Serious: No
  Sender: FDA-Public Use
  Company Number: US-ACORDA-ACO_131148_2016

PATIENT
  Age: 60 Year
  Sex: Female
  Weight: 63.49 kg

DRUGS (5)
  1. VENLAFAXINE [Concomitant]
     Active Substance: VENLAFAXINE HYDROCHLORIDE
     Indication: PRODUCT USED FOR UNKNOWN INDICATION
     Dosage: UNK
  2. ALPRAZOLAM. [Concomitant]
     Active Substance: ALPRAZOLAM
     Indication: PRODUCT USED FOR UNKNOWN INDICATION
     Dosage: UNK
  3. TECFIDERA [Concomitant]
     Active Substance: DIMETHYL FUMARATE
     Indication: PRODUCT USED FOR UNKNOWN INDICATION
     Dosage: UNK
  4. AMPYRA [Suspect]
     Active Substance: DALFAMPRIDINE
     Indication: GAIT DISTURBANCE
     Dosage: 10 MG, BID
     Route: 048
     Dates: start: 201609, end: 20161128
  5. WATER PILLS [Concomitant]
     Active Substance: UNSPECIFIED INGREDIENT

REACTIONS (12)
  - Withdrawal syndrome [Recovered/Resolved]
  - Gait disturbance [Not Recovered/Not Resolved]
  - Joint swelling [Unknown]
  - Infection [Unknown]
  - Therapy cessation [Not Recovered/Not Resolved]
  - Anxiety [Recovered/Resolved]
  - Hyperhidrosis [Recovered/Resolved]
  - Nervousness [Recovered/Resolved]
  - Palpitations [Recovered/Resolved]
  - Headache [Recovered/Resolved]
  - Joint injury [Unknown]
  - Laceration [Unknown]

NARRATIVE: CASE EVENT DATE: 20161102
